FAERS Safety Report 18364518 (Version 1)
Quarter: 2020Q4

REPORT INFORMATION
  Report Type: Spontaneous
  Country: US (occurrence: US)
  Receive Date: 20201009
  Receipt Date: 20201009
  Transmission Date: 20210114
  Serious: Yes (Other)
  Sender: FDA-Public Use
  Company Number: NVSC2020US267323

PATIENT
  Age: 18 Year
  Sex: Male
  Weight: 78 kg

DRUGS (1)
  1. ADAKVEO [Suspect]
     Active Substance: CRIZANLIZUMAB-TMCA
     Indication: PROPHYLAXIS
     Dosage: 5 MG/KG, QMO
     Route: 042
     Dates: start: 20200821, end: 20200821

REACTIONS (2)
  - Back pain [Recovered/Resolved]
  - Pain [Recovered/Resolved]

NARRATIVE: CASE EVENT DATE: 20200821
